FAERS Safety Report 24913256 (Version 1)
Quarter: 2025Q1

REPORT INFORMATION
  Report Type: Spontaneous
  Country: US (occurrence: US)
  Receive Date: 20250201
  Receipt Date: 20250201
  Transmission Date: 20250409
  Serious: Yes (Other)
  Sender: TEVA
  Company Number: US-TEVA-VS-3291354

PATIENT
  Age: 41 Year
  Sex: Female
  Weight: 83.01 kg

DRUGS (24)
  1. ONDANSETRON [Suspect]
     Active Substance: ONDANSETRON
     Indication: Nausea
     Dosage: ORALLY DISINTEGRATED TABLET, AND IS TO DISSOLVE ONE TABLET ON TONGUE TWO TIMES DAILY
     Route: 048
  2. PREGABALIN [Concomitant]
     Active Substance: PREGABALIN
     Indication: Fibromyalgia
     Dosage: 150MG, TAKE ONE CAPSULE ORALLY EVERY 8 HOURS, TAKING ABOUT 12 YEARS
  3. TIZANIDINE [Concomitant]
     Active Substance: TIZANIDINE
     Indication: Muscle spasms
     Route: 048
  4. METHOCARBAMOL [Concomitant]
     Active Substance: METHOCARBAMOL
     Indication: Muscle spasms
     Route: 048
  5. METFORMIN [Concomitant]
     Active Substance: METFORMIN HYDROCHLORIDE
     Indication: Polycystic ovarian syndrome
     Dosage: 500MG, TAKE ONE TABLET WITH EVENING MEAL ORALLY ONCE A DAY
     Route: 048
  6. FLUTICASONE PROPIONATE AND SALMETEROL [Concomitant]
     Active Substance: FLUTICASONE PROPIONATE\SALMETEROL XINAFOATE
     Indication: Asthma
     Route: 048
  7. MORPHINE [Concomitant]
     Active Substance: MORPHINE
     Indication: Pain
     Route: 048
  8. MORPHINE [Concomitant]
     Active Substance: MORPHINE
     Indication: Pain
     Route: 048
  9. LIOTHYRONINE [Concomitant]
     Active Substance: LIOTHYRONINE
     Indication: Hypothyroidism
     Route: 065
  10. LIOTHYRONINE [Concomitant]
     Active Substance: LIOTHYRONINE
     Indication: Hypothyroidism
     Dosage: 25MCG, TAKE TWO TABLETS ON AN EMPTY STOMACH ONCE PER DAY IN THE MORNING
     Route: 048
     Dates: start: 202411
  11. OMEPRAZOLE [Concomitant]
     Active Substance: OMEPRAZOLE
     Indication: Gastrooesophageal reflux disease
     Dosage: 40MG, TAKE ONE CAPSULE BY MOUTH EVERY DAY, TAKING FOR ABOUT 10 YEARS
     Route: 048
  12. LEVOTHYROXINE [Concomitant]
     Active Substance: LEVOTHYROXINE
     Indication: Hypothyroidism
     Route: 048
  13. HYDROXYCHLOROQUINE [Concomitant]
     Active Substance: HYDROXYCHLOROQUINE
     Indication: Autoimmune disorder
     Dosage: 200MG, TAKE ONE TABLET BY MOUTH TWICE A DAY, TAKING FOR ABOUT 10 YEARS
     Route: 048
  14. FAMOTIDINE [Concomitant]
     Active Substance: FAMOTIDINE
     Indication: Hypersensitivity
     Dosage: 40MG, TAKE ONE TABLET BY MOUTH EVERY DAY, TAKING FOR MORE THAN 5 YEARS
     Route: 048
  15. PROGESTERONE [Concomitant]
     Active Substance: PROGESTERONE
     Indication: Hormone level abnormal
     Dosage: 200MG, ONE CAPSULE AT BEDTIME ORALLY ONCE A DAY
     Route: 048
  16. MONTELUKAST [Concomitant]
     Active Substance: MONTELUKAST
     Indication: Asthma
     Route: 048
  17. SYMBICORT [Concomitant]
     Active Substance: BUDESONIDE\FORMOTEROL FUMARATE DIHYDRATE
     Indication: Asthma
     Route: 048
  18. XHANCE [Concomitant]
     Active Substance: FLUTICASONE PROPIONATE
     Indication: Nasal polyps
     Dosage: 93MCG, SPRAY TWO SPRAYS BY INTRANASAL ROUTE TWICE A DAY IN EACH NOSTRIL
     Route: 045
     Dates: start: 202403
  19. ALBUTEROL [Concomitant]
     Active Substance: ALBUTEROL
     Indication: Asthma
  20. AZELASTINE [Concomitant]
     Active Substance: AZELASTINE
     Indication: Hypersensitivity
     Dosage: 137MCG, TAKE TWO SPRAYS IN EACH NOSTRIL TWICE A DAY, TAKING ABOUT 10 OR 11 YEARS
     Route: 045
  21. XOLAIR [Concomitant]
     Active Substance: OMALIZUMAB
     Indication: Urticaria chronic
     Dosage: THE DOSE IS 300MG, INJECTION UNDER SKIN EVERY 28 DAYS
     Route: 058
     Dates: start: 2016
  22. BOTOX [Concomitant]
     Active Substance: ONABOTULINUMTOXINA
     Indication: Migraine
     Dates: start: 2018
  23. LITFULO [Suspect]
     Active Substance: RITLECITINIB TOSYLATE
     Indication: Alopecia areata
     Dosage: 50MG CAPSULE ONCE A DAY BY MOUTH
     Route: 048
     Dates: start: 2024
  24. ZOFRAN [Suspect]
     Active Substance: ONDANSETRON HYDROCHLORIDE
     Indication: Product used for unknown indication
     Route: 065

REACTIONS (6)
  - Carpal tunnel syndrome [Unknown]
  - Eczema [Unknown]
  - Nausea [Unknown]
  - Drug ineffective [Unknown]
  - Neuralgia [Unknown]
  - Dysstasia [Unknown]

NARRATIVE: CASE EVENT DATE: 20241201
